FAERS Safety Report 6290441-2 (Version None)
Quarter: 2009Q3

REPORT INFORMATION
  Report Type: 
  Country: None (occurrence: None)
  Receive Date: 20090730
  Receipt Date: 20090415
  Transmission Date: 20100115
  Serious: Yes (Hospitalization, Other)
  Sender: FDA-Public Use
  Company Number: US-BRISTOL-MYERS SQUIBB COMPANY-14588370

PATIENT
  Age: 87 Year
  Sex: Female

DRUGS (4)
  1. COUMADIN [Suspect]
  2. DIGOXIN [Concomitant]
  3. PROPOXYPHENE HCL CAP [Concomitant]
  4. CALCIUM [Concomitant]

REACTIONS (2)
  - CEREBRAL HAEMORRHAGE [None]
  - INTERNATIONAL NORMALISED RATIO INCREASED [None]
